FAERS Safety Report 7918190-2 (Version None)
Quarter: 2011Q4

REPORT INFORMATION
  Report Type: 
  Country: None (occurrence: None)
  Receive Date: 20111116
  Receipt Date: 20111109
  Transmission Date: 20120403
  Serious: Yes (Death, Other)
  Sender: FDA-Public Use
  Company Number: US-CELGENEUS-163-21880-08040701

PATIENT

DRUGS (3)
  1. REVLIMID [Suspect]
     Dosage: 5G DAILY WITH DOSE ESCALATION UP TO 25MG DAILY.
     Route: 048
  2. ASPIRIN [Concomitant]
     Indication: THROMBOSIS PROPHYLAXIS
     Route: 065
  3. ALLOPURINOL [Concomitant]
     Dosage: 300 MILLIGRAM
     Route: 065

REACTIONS (58)
  - DRY MOUTH [None]
  - INSOMNIA [None]
  - DYSPEPSIA [None]
  - SKIN LESION [None]
  - DIARRHOEA [None]
  - UPPER RESPIRATORY TRACT INFECTION [None]
  - ORAL INFECTION [None]
  - RASH [None]
  - PERIPHERAL SENSORY NEUROPATHY [None]
  - ALANINE AMINOTRANSFERASE ABNORMAL [None]
  - HYPERKALAEMIA [None]
  - RICHTER'S SYNDROME [None]
  - PNEUMOCYSTIS JIROVECI PNEUMONIA [None]
  - PYREXIA [None]
  - NEUTROPENIA [None]
  - INFECTION [None]
  - ARTHRALGIA [None]
  - HYPERURICAEMIA [None]
  - HEADACHE [None]
  - ABDOMINAL DISTENSION [None]
  - MUSCLE SPASMS [None]
  - HYPOKALAEMIA [None]
  - COLON CANCER [None]
  - FATIGUE [None]
  - GASTROENTERITIS CRYPTOSPORIDIAL [None]
  - THROMBOCYTOPENIA [None]
  - HYPERHIDROSIS [None]
  - NAUSEA [None]
  - DRY SKIN [None]
  - WEIGHT DECREASED [None]
  - PNEUMONIA [None]
  - GASTROENTERITIS ROTAVIRUS [None]
  - ANAEMIA [None]
  - URINARY TRACT INFECTION [None]
  - VOMITING [None]
  - HYPERGLYCAEMIA [None]
  - HYPOMAGNESAEMIA [None]
  - MYALGIA [None]
  - FLATULENCE [None]
  - OEDEMA PERIPHERAL [None]
  - DEEP VEIN THROMBOSIS [None]
  - BACTERAEMIA [None]
  - BACK PAIN [None]
  - HYPOCALCAEMIA [None]
  - SYNCOPE [None]
  - PRURITUS [None]
  - DYSPNOEA [None]
  - BLOOD CREATININE ABNORMAL [None]
  - NERVOUS SYSTEM DISORDER [None]
  - ABDOMINAL PAIN [None]
  - HYPERBILIRUBINAEMIA [None]
  - TUMOUR FLARE [None]
  - EAR INFECTION [None]
  - CONSTIPATION [None]
  - COUGH [None]
  - DIZZINESS [None]
  - DECREASED APPETITE [None]
  - ASPARTATE AMINOTRANSFERASE ABNORMAL [None]
